FAERS Safety Report 18059261 (Version 1)
Quarter: 2020Q3

REPORT INFORMATION
  Report Type: Spontaneous
  Country: US (occurrence: US)
  Receive Date: 20200722
  Receipt Date: 20200722
  Transmission Date: 20201103
  Serious: No
  Sender: FDA-Public Use
  Company Number: None

PATIENT
  Age: 62 Year
  Sex: Male
  Weight: 68.04 kg

DRUGS (1)
  1. EMPAGLIFLOZIN (EMPAGLIFLOZIN 25MG TAB) [Suspect]
     Active Substance: EMPAGLIFLOZIN
     Indication: DIABETES MELLITUS
     Route: 048
     Dates: start: 20190730, end: 20200629

REACTIONS (5)
  - Euglycaemic diabetic ketoacidosis [None]
  - Abdominal pain [None]
  - Defaecation urgency [None]
  - Glycosylated haemoglobin increased [None]
  - Diarrhoea haemorrhagic [None]

NARRATIVE: CASE EVENT DATE: 20200603
